FAERS Safety Report 23665147 (Version 1)
Quarter: 2024Q1

REPORT INFORMATION
  Report Type: Spontaneous
  Country: US (occurrence: US)
  Receive Date: 20240322
  Receipt Date: 20240322
  Transmission Date: 20240410
  Serious: No
  Sender: FDA-Public Use
  Company Number: US-BAUSCHBL-2024BNL003552

PATIENT
  Age: 76 Year
  Sex: Male

DRUGS (2)
  1. XIIDRA [Suspect]
     Active Substance: LIFITEGRAST
     Indication: Dry eye
     Dosage: 1 DROP IN EACH EYE TWICE DAILY
     Route: 047
  2. GENTEAL (HYPROMELLOSE) [Concomitant]
     Indication: Product used for unknown indication
     Route: 065

REACTIONS (4)
  - Burning sensation [Unknown]
  - Pain [Unknown]
  - Visual impairment [Unknown]
  - Product residue present [Unknown]
